FAERS Safety Report 13767255 (Version 1)
Quarter: 2017Q3

REPORT INFORMATION
  Report Type: Report from Study
  Country: DE (occurrence: DE)
  Receive Date: 20170719
  Receipt Date: 20170719
  Transmission Date: 20171127
  Serious: Yes (Other)
  Sender: FDA-Public Use
  Company Number: DE-TEVA-787041GER

PATIENT
  Age: 54 Year
  Sex: Female

DRUGS (6)
  1. CARBAMAZEPINE. [Suspect]
     Active Substance: CARBAMAZEPINE
     Indication: TRIGEMINAL NEURALGIA
     Dosage: 200 MILLIGRAM DAILY;
     Route: 048
     Dates: start: 20140122, end: 20141022
  2. GABAPENTIN. [Concomitant]
     Active Substance: GABAPENTIN
     Dates: start: 20160204
  3. LYRICA [Concomitant]
     Active Substance: PREGABALIN
     Dates: start: 20130314, end: 20140124
  4. CARBAMAZEPINE. [Suspect]
     Active Substance: CARBAMAZEPINE
     Dosage: 400 MILLIGRAM DAILY;
     Route: 065
     Dates: start: 20160204, end: 20160614
  5. GILENYA [Suspect]
     Active Substance: FINGOLIMOD HYDROCHLORIDE
     Indication: MULTIPLE SCLEROSIS
     Dosage: .5 MILLIGRAM DAILY;
     Route: 048
     Dates: start: 20120405
  6. IBUPROFEN. [Concomitant]
     Active Substance: IBUPROFEN
     Dates: start: 19980801

REACTIONS (3)
  - Gamma-glutamyltransferase increased [Unknown]
  - Liver function test increased [Unknown]
  - Melanocytic naevus [Recovered/Resolved]

NARRATIVE: CASE EVENT DATE: 20140919
